FAERS Safety Report 8858352 (Version 1)
Quarter: 2012Q4

REPORT INFORMATION
  Report Type: 
  Country: US (occurrence: US)
  Receive Date: 20121024
  Receipt Date: 20121024
  Transmission Date: 20130627
  Serious: No
  Sender: FDA-Public Use
  Company Number: US-AMGEN-USASP2011062162

PATIENT
  Age: 63 Year
  Sex: Female

DRUGS (16)
  1. ENBREL [Suspect]
     Indication: PRODUCT USED FOR UNKNOWN INDICATION
     Dosage: 50 mg, q2wk
  2. CYMBALTA [Concomitant]
     Dosage: 30 mg, UNK
  3. VOLTAREN                           /00372301/ [Concomitant]
     Dosage: 25 mg, UNK
  4. FUROSEMIDE [Concomitant]
     Dosage: 20 mg, UNK
  5. PRILOSEC                           /00661201/ [Concomitant]
     Dosage: 10 mg, UNK
  6. APAP W/HYDROCODONE [Concomitant]
  7. VITAMIN B 1-6-12 [Concomitant]
  8. VITAMIN C                          /00008001/ [Concomitant]
  9. GLUCOSAM HCL/CHONDROIT SULF/MANGANESE ASCORB [Concomitant]
  10. COLLAGEN [Concomitant]
     Dosage: 500 mg, UNK
  11. PROVIGIL [Concomitant]
     Dosage: 100 mg, UNK
  12. CO Q10 [Concomitant]
     Dosage: 100 mg, UNK
  13. HYALURONIC ACID [Concomitant]
  14. IRON [Concomitant]
     Dosage: 50 mg, UNK
  15. FOLIC ACID [Concomitant]
     Dosage: 20 mg, UNK
  16. MALIC ACID [Concomitant]
     Dosage: 800 mg, UNK

REACTIONS (3)
  - Injection site inflammation [Unknown]
  - Injection site erythema [Unknown]
  - Injection site pain [Unknown]
